FAERS Safety Report 5051903-9 (Version None)
Quarter: 2006Q3

REPORT INFORMATION
  Report Type: 
  Country: None (occurrence: None)
  Receive Date: 20060713
  Receipt Date: 20060713
  Transmission Date: 20061208
  Serious: Yes (Hospitalization)
  Sender: FDA-Public Use
  Company Number: None

PATIENT
  Sex: Female
  Weight: 131.5431 kg

DRUGS (1)
  1. DEPODUR [Suspect]
     Indication: KNEE ARTHROPLASTY
     Dosage: 15 MG X1 EPIDURAL
     Route: 008
     Dates: start: 20060619

REACTIONS (2)
  - NAUSEA [None]
  - URINARY RETENTION [None]
